FAERS Safety Report 18219067 (Version 1)
Quarter: 2020Q3

REPORT INFORMATION
  Report Type: Spontaneous
  Country: US (occurrence: US)
  Receive Date: 20200901
  Receipt Date: 20200901
  Transmission Date: 20201103
  Serious: Yes (Other)
  Sender: FDA-Public Use
  Company Number: US-MYLANLABS-2020M1075454

PATIENT
  Sex: Male

DRUGS (1)
  1. TRAMADOL. [Suspect]
     Active Substance: TRAMADOL
     Indication: PRODUCT USED FOR UNKNOWN INDICATION
     Dosage: UNK

REACTIONS (6)
  - Aortic arteriosclerosis [Unknown]
  - Gastritis [Unknown]
  - Condition aggravated [Unknown]
  - Dependence [Unknown]
  - Gastrooesophageal reflux disease [Unknown]
  - Constipation [Unknown]
